FAERS Safety Report 20520466 (Version 2)
Quarter: 2022Q1

REPORT INFORMATION
  Report Type: Spontaneous
  Country: BR (occurrence: BR)
  Receive Date: 20220225
  Receipt Date: 20220325
  Transmission Date: 20220423
  Serious: Yes (Life-Threatening)
  Sender: FDA-Public Use
  Company Number: BR-BIOMARINAP-BR-2022-141716

PATIENT
  Age: 13 Year
  Sex: Female

DRUGS (2)
  1. NAGLAZYME [Suspect]
     Active Substance: GALSULFASE
     Indication: Mucopolysaccharidosis VI
     Dosage: UNK, QW
     Route: 042
     Dates: start: 201012
  2. COVID-19 VACCINE NOS [Suspect]
     Active Substance: COVID-19 VACCINE NOS
     Indication: Immunisation
     Dosage: UNK
     Route: 065
     Dates: start: 202203

REACTIONS (2)
  - Bedridden [Not Recovered/Not Resolved]
  - Illness [Not Recovered/Not Resolved]
